FAERS Safety Report 4733424-3 (Version None)
Quarter: 2005Q3

REPORT INFORMATION
  Report Type: 
  Country: None (occurrence: None)
  Receive Date: 20050801
  Receipt Date: 20050801
  Transmission Date: 20060218
  Serious: Yes (Hospitalization)
  Sender: FDA-Public Use
  Company Number: None

PATIENT
  Sex: Male

DRUGS (2)
  1. FLUDARABINE [Suspect]
     Dosage: 53 MG
     Dates: start: 20050110, end: 20050113
  2. FLUDARABINE [Suspect]
     Dosage: 53 MG
     Dates: start: 20050207, end: 20050211

REACTIONS (3)
  - ASTHENIA [None]
  - COOMBS TEST POSITIVE [None]
  - HAEMOLYTIC ANAEMIA [None]
